FAERS Safety Report 23451627 (Version 2)
Quarter: 2024Q3

REPORT INFORMATION
  Report Type: Spontaneous
  Country: US (occurrence: US)
  Receive Date: 20240129
  Receipt Date: 20240717
  Transmission Date: 20241016
  Serious: No
  Sender: SANOFI AVENTIS
  Company Number: US-SA-SAC20240119001482

PATIENT
  Age: 54 Year
  Sex: Female

DRUGS (3)
  1. DUPIXENT [Suspect]
     Active Substance: DUPILUMAB
     Indication: Asthma
     Dosage: UNK LOADING DOSE, 1X
     Route: 058
     Dates: start: 20231016, end: 20231016
  2. DUPIXENT [Suspect]
     Active Substance: DUPILUMAB
     Dosage: 300 MG, QOW
     Route: 058
     Dates: start: 2023
  3. PREDNISONE [Suspect]
     Active Substance: PREDNISONE
     Indication: Upper respiratory tract infection
     Dosage: UNK
     Dates: start: 20231020

REACTIONS (11)
  - Nasal congestion [Recovering/Resolving]
  - Periorbital swelling [Recovering/Resolving]
  - Tremor [Recovering/Resolving]
  - Hyperaesthesia teeth [Recovering/Resolving]
  - Rhinorrhoea [Recovering/Resolving]
  - Muscle twitching [Recovering/Resolving]
  - Upper respiratory tract infection [Recovering/Resolving]
  - Initial insomnia [Recovering/Resolving]
  - Swelling face [Recovering/Resolving]
  - Dry eye [Recovering/Resolving]
  - Drug ineffective [Unknown]

NARRATIVE: CASE EVENT DATE: 20231001
